FAERS Safety Report 6106453-5 (Version None)
Quarter: 2009Q1

REPORT INFORMATION
  Report Type: 
  Country: None (occurrence: None)
  Receive Date: 20090306
  Receipt Date: 20090109
  Transmission Date: 20090719
  Serious: Yes (Hospitalization)
  Sender: FDA-Public Use
  Company Number: JP-ABBOTT-08P-087-0442800-00

PATIENT
  Age: 68 Year
  Sex: Male

DRUGS (18)
  1. LEUPROLIDE ACETATE [Suspect]
     Indication: PROSTATE CANCER STAGE II
     Route: 058
     Dates: start: 20070126, end: 20070126
  2. LEUPROLIDE ACETATE [Suspect]
     Route: 058
     Dates: start: 20070420, end: 20070420
  3. LEUPROLIDE ACETATE [Suspect]
     Route: 058
     Dates: start: 20070713, end: 20070713
  4. LEUPROLIDE ACETATE [Suspect]
     Route: 058
     Dates: start: 20071005, end: 20071005
  5. LEUPROLIDE ACETATE [Suspect]
     Route: 058
     Dates: start: 20071226, end: 20071226
  6. LEUPROLIDE ACETATE [Suspect]
     Route: 058
     Dates: start: 20080321, end: 20080321
  7. LEUPROLIDE ACETATE [Suspect]
     Route: 058
     Dates: start: 20080613, end: 20080613
  8. LEUPROLIDE ACETATE [Suspect]
     Route: 058
     Dates: start: 20080905, end: 20080905
  9. LEUPROLIDE ACETATE [Suspect]
     Route: 058
     Dates: start: 20081128
  10. CASODEX [Concomitant]
     Indication: PROSTATE CANCER STAGE II
     Route: 048
  11. AMOXICILLIN [Concomitant]
     Indication: CYSTITIS NONINFECTIVE
     Route: 048
     Dates: start: 20070420, end: 20070427
  12. VERAPAMIL HYDROCHLORIDE [Concomitant]
     Indication: ARRHYTHMIA
     Route: 048
     Dates: end: 20070718
  13. VERAPAMIL HYDROCHLORIDE [Concomitant]
     Route: 048
     Dates: start: 20070719
  14. DIGOXIN [Concomitant]
     Indication: ARRHYTHMIA
     Route: 048
  15. WARFARIN POTASSIUM [Concomitant]
     Indication: CEREBRAL INFARCTION
     Route: 048
  16. TAMSULOSIN HYDROCHLORIDE [Concomitant]
     Indication: BENIGN PROSTATIC HYPERPLASIA
     Route: 048
     Dates: end: 20071004
  17. ZOPICLONE [Concomitant]
     Indication: INSOMNIA
     Route: 048
     Dates: end: 20070725
  18. EVIPROSTAT [Concomitant]
     Indication: BENIGN PROSTATIC HYPERPLASIA
     Route: 048
     Dates: start: 20071228

REACTIONS (1)
  - EPILEPSY [None]
